FAERS Safety Report 9510935 (Version 1)
Quarter: 2013Q3

REPORT INFORMATION
  Report Type: Spontaneous
  Country: US (occurrence: US)
  Receive Date: 20130910
  Receipt Date: 20130910
  Transmission Date: 20140515
  Serious: No
  Sender: FDA-Public Use
  Company Number: US-009507513-1309USA003847

PATIENT
  Sex: Female

DRUGS (1)
  1. COSOPT PF [Suspect]
     Dosage: INSTILL 1 DROP BOTH EYES DAILY
     Route: 047
     Dates: start: 201307, end: 20130823

REACTIONS (1)
  - Chest pain [Recovered/Resolved]
